FAERS Safety Report 7985187-6 (Version None)
Quarter: 2011Q4

REPORT INFORMATION
  Report Type: 
  Country: None (occurrence: None)
  Receive Date: 20111213
  Receipt Date: 20111205
  Transmission Date: 20120403
  Serious: Yes (Hospitalization, Other)
  Sender: FDA-Public Use
  Company Number: 2011SP030612

PATIENT
  Age: 28 Year
  Sex: Female
  Weight: 68.0396 kg

DRUGS (2)
  1. NUVARING [Suspect]
     Indication: CONTRACEPTION
     Dates: start: 20050901, end: 20070501
  2. NUVARING [Suspect]
     Indication: CONTRACEPTION
     Dates: start: 20080301, end: 20080717

REACTIONS (21)
  - CEREBELLAR INFARCTION [None]
  - EMOTIONAL DISORDER [None]
  - ANXIETY [None]
  - DEPRESSION [None]
  - PULMONARY EMBOLISM [None]
  - BLOOD CHOLESTEROL INCREASED [None]
  - COGNITIVE DISORDER [None]
  - PARANOIA [None]
  - CERVICAL DYSPLASIA [None]
  - MENTAL DISORDER [None]
  - GALLBLADDER DISORDER [None]
  - NAUSEA [None]
  - CEREBROVASCULAR ACCIDENT [None]
  - DIZZINESS [None]
  - TRANSIENT ISCHAEMIC ATTACK [None]
  - DEEP VEIN THROMBOSIS [None]
  - VERTEBRAL ARTERY DISSECTION [None]
  - SPEECH DISORDER [None]
  - MUSCULOSKELETAL DISCOMFORT [None]
  - THYROID NEOPLASM [None]
  - CHOLECYSTITIS [None]
